FAERS Safety Report 9786881 (Version 1)
Quarter: 2013Q4

REPORT INFORMATION
  Report Type: Spontaneous
  Country: US (occurrence: US)
  Receive Date: 20131227
  Receipt Date: 20131227
  Transmission Date: 20140711
  Serious: Yes (Other)
  Sender: FDA-Public Use
  Company Number: US-PFIZER INC-2013371699

PATIENT
  Age: 30 Year
  Sex: Male

DRUGS (1)
  1. MORPHINE SULFATE [Suspect]
     Indication: PAIN
     Dosage: BEGAN MILD DOSES AND OVERTIME INCREASED AND REACHED 250 MG THREE OR FOUR TIMES A DAY
     Route: 048
     Dates: start: 1993

REACTIONS (8)
  - Drug dependence [Recovered/Resolved]
  - Suicidal behaviour [Recovered/Resolved]
  - Pancreatic carcinoma [Recovered/Resolved]
  - Hereditary pancreatitis [Recovered/Resolved]
  - Major depression [Recovered/Resolved]
  - Impaired work ability [Recovered/Resolved]
  - Memory impairment [Recovered/Resolved]
  - Emotional distress [Recovered/Resolved]
